FAERS Safety Report 5524677-2 (Version None)
Quarter: 2007Q4

REPORT INFORMATION
  Report Type: 
  Country: None (occurrence: None)
  Receive Date: 20071123
  Receipt Date: 20071113
  Transmission Date: 20080405
  Serious: Yes (Hospitalization)
  Sender: FDA-Public Use
  Company Number: US-ROCHE-531847

PATIENT
  Age: 51 Year
  Sex: Female

DRUGS (3)
  1. PEG-INTERFERON A-2A (RO 25-8310) [Suspect]
     Indication: CHRONIC HEPATITIS
     Route: 065
     Dates: start: 20060404
  2. RIBAVIRIN [Suspect]
     Indication: CHRONIC HEPATITIS
     Route: 048
     Dates: start: 20060404
  3. LOPRESSOR [Concomitant]

REACTIONS (5)
  - EXTRADURAL ABSCESS [None]
  - INTERVERTEBRAL DISC PROTRUSION [None]
  - SPINAL CORD COMPRESSION [None]
  - SPONDYLITIS [None]
  - SUBCUTANEOUS ABSCESS [None]
